FAERS Safety Report 4461797-8 (Version None)
Quarter: 2004Q3

REPORT INFORMATION
  Report Type: 
  Country: None (occurrence: None)
  Receive Date: 20040929
  Receipt Date: 20031020
  Transmission Date: 20050211
  Serious: No
  Sender: FDA-Public Use
  Company Number: US-GLAXOSMITHKLINE-A0430848A

PATIENT
  Age: 84 Year
  Sex: Female

DRUGS (2)
  1. SEREVENT [Suspect]
     Indication: ASTHMA
     Dosage: 1PUFF TWICE PER DAY
     Route: 055
     Dates: start: 20031001
  2. FLOVENT [Concomitant]
     Dosage: 110MCG THREE TIMES PER DAY
     Route: 055

REACTIONS (2)
  - DYSPNOEA [None]
  - HOARSENESS [None]
